FAERS Safety Report 11253354 (Version 1)
Quarter: 2015Q3

REPORT INFORMATION
  Report Type: Spontaneous
  Country: US (occurrence: US)
  Receive Date: 20150709
  Receipt Date: 20150709
  Transmission Date: 20151125
  Serious: No
  Sender: FDA-Public Use
  Company Number: US-TEVA-503480USA

PATIENT
  Sex: Male
  Weight: 74.91 kg

DRUGS (3)
  1. TRAMADOL. [Suspect]
     Active Substance: TRAMADOL
     Indication: PAIN
     Route: 048
     Dates: start: 2005
  2. POTASSIUM [Concomitant]
     Active Substance: POTASSIUM
  3. VITAMINS [Concomitant]
     Active Substance: VITAMINS

REACTIONS (2)
  - Blood potassium decreased [Unknown]
  - Drug resistance [Unknown]
